FAERS Safety Report 8914569 (Version 1)
Quarter: 2012Q4

REPORT INFORMATION
  Report Type: 
  Country: SE (occurrence: SE)
  Receive Date: 20121119
  Receipt Date: 20121119
  Transmission Date: 20130627
  Serious: Yes (Hospitalization, Other)
  Sender: FDA-Public Use
  Company Number: SE-PFIZER INC-2012286358

PATIENT
  Age: 34 Year
  Sex: Female
  Weight: 142.4 kg

DRUGS (3)
  1. GENOTROPIN [Suspect]
     Dosage: 0.7 mg, 1x/day,7 injections/week
     Route: 058
     Dates: start: 20100415
  2. FOLACIN [Concomitant]
     Indication: MALABSORPTION
     Dosage: UNK
     Dates: start: 20091016
  3. BEHEPAN [Concomitant]
     Indication: VITAMIN B12 DEFICIENCY
     Dosage: UNK
     Dates: start: 20100414

REACTIONS (1)
  - Cerebrovascular accident [Unknown]
